FAERS Safety Report 6236368-3 (Version None)
Quarter: 2009Q2

REPORT INFORMATION
  Report Type: 
  Country: None (occurrence: None)
  Receive Date: 20090619
  Receipt Date: 20090608
  Transmission Date: 20091009
  Serious: Yes (Hospitalization)
  Sender: FDA-Public Use
  Company Number: FR-JNJFOC-20090602599

PATIENT
  Age: 60 Year
  Sex: Female

DRUGS (4)
  1. CAELYX [Suspect]
     Indication: OVARIAN CANCER
     Dosage: CYCLE 4
     Route: 042
  2. SOLU-MEDROL [Suspect]
     Indication: PREMEDICATION
     Route: 042
  3. PLITICAN [Suspect]
     Indication: PREMEDICATION
     Route: 042
  4. ONDANSETRON HCL [Suspect]
     Indication: PREMEDICATION
     Route: 042

REACTIONS (4)
  - DYSPEPSIA [None]
  - MUCOSAL INFLAMMATION [None]
  - PRURITUS [None]
  - SKIN HYPERPIGMENTATION [None]
